FAERS Safety Report 5303668-0 (Version None)
Quarter: 2007Q2

REPORT INFORMATION
  Report Type: 
  Country: None (occurrence: None)
  Receive Date: 20070420
  Receipt Date: 20070416
  Transmission Date: 20071010
  Serious: No
  Sender: FDA-Public Use
  Company Number: US-PFIZER INC-2007009269

PATIENT
  Sex: Female
  Weight: 72 kg

DRUGS (12)
  1. ADRIAMYCIN PFS [Suspect]
     Indication: BREAST CANCER
     Dates: start: 20060914, end: 20061228
  2. TAXOTERE [Suspect]
     Indication: BREAST CANCER
     Dates: start: 20060914, end: 20061228
  3. VITAMINS [Concomitant]
  4. MOMETASONE FUROATE [Concomitant]
  5. AZELASTINE HCL [Concomitant]
  6. LORATADINE [Concomitant]
  7. LOPERAMIDE HYDROCHLORIDE [Concomitant]
  8. CIMETIDINE HCL [Concomitant]
     Dates: start: 20060914, end: 20061228
  9. DIPHENHYDRAMINE HYDROCHLORIDE [Concomitant]
     Dates: start: 20060914, end: 20061228
  10. DOLASETRON MESILATE [Concomitant]
     Dates: start: 20060914, end: 20061228
  11. DEXAMETHASONE 0.5MG TAB [Concomitant]
     Dates: start: 20060914, end: 20061228
  12. CYCLOPHOSPHAMIDE [Concomitant]
     Dates: start: 20060914, end: 20061228

REACTIONS (1)
  - NO ADVERSE EFFECT [None]
